FAERS Safety Report 6472672-1 (Version None)
Quarter: 2009Q4

REPORT INFORMATION
  Report Type: 
  Country: None (occurrence: None)
  Receive Date: 20091203
  Receipt Date: 20081211
  Transmission Date: 20100525
  Serious: No
  Sender: FDA-Public Use
  Company Number: US-AMGEN-KDL323490

PATIENT
  Sex: Female

DRUGS (2)
  1. ENBREL [Suspect]
     Indication: RHEUMATOID ARTHRITIS
     Route: 058
     Dates: start: 20080314
  2. METHOTREXATE [Concomitant]
     Route: 048

REACTIONS (8)
  - ARTHRALGIA [None]
  - BRONCHITIS [None]
  - CONTUSION [None]
  - DRUG INEFFECTIVE [None]
  - EXPOSURE TO TOXIC AGENT [None]
  - FATIGUE [None]
  - INJECTION SITE PAIN [None]
  - OVERWEIGHT [None]
